FAERS Safety Report 14213068 (Version 2)
Quarter: 2017Q4

REPORT INFORMATION
  Report Type: Spontaneous
  Country: BR (occurrence: BR)
  Receive Date: 20171122
  Receipt Date: 20171123
  Transmission Date: 20180321
  Serious: Yes (Other)
  Sender: FDA-Public Use
  Company Number: BR-GLAXOSMITHKLINE-BR2017GSK177236

PATIENT
  Sex: Male
  Weight: 82 kg

DRUGS (1)
  1. NIQUITIN [Suspect]
     Active Substance: NICOTINE
     Indication: SMOKING CESSATION THERAPY
     Dosage: UNK

REACTIONS (4)
  - Blood pressure fluctuation [Unknown]
  - Hospitalisation [Unknown]
  - Product quality issue [Unknown]
  - Wrong technique in product usage process [Unknown]
